FAERS Safety Report 6921404-9 (Version None)
Quarter: 2010Q3

REPORT INFORMATION
  Report Type: 
  Country: None (occurrence: None)
  Receive Date: 20100812
  Receipt Date: 20100730
  Transmission Date: 20110219
  Serious: Yes (Other)
  Sender: FDA-Public Use
  Company Number: PHHY2010MT50130

PATIENT
  Sex: Female

DRUGS (1)
  1. DIOVAN [Suspect]
     Indication: HYPERTENSION
     Dosage: 160 MG TABLETS
     Route: 048
     Dates: start: 20090101, end: 20100401

REACTIONS (3)
  - ANGIOEDEMA [None]
  - MENTAL DISORDER [None]
  - URTICARIA [None]
